FAERS Safety Report 16565431 (Version 1)
Quarter: 2019Q3

REPORT INFORMATION
  Report Type: Report from Study
  Country: RO (occurrence: RO)
  Receive Date: 20190712
  Receipt Date: 20190712
  Transmission Date: 20191004
  Serious: Yes (Hospitalization, Other)
  Sender: FDA-Public Use
  Company Number: RO-MYLANLABS-2019M1063994

PATIENT
  Age: 80 Year
  Sex: Female
  Weight: 60 kg

DRUGS (5)
  1. ERLOTINIB [Suspect]
     Active Substance: ERLOTINIB
     Dosage: THERAPY RE-STARTED
     Route: 048
     Dates: start: 20180111
  2. ERLOTINIB [Suspect]
     Active Substance: ERLOTINIB
     Dosage: THERAPY RE-STARTED
     Route: 048
     Dates: start: 20171201
  3. ERLOTINIB [Suspect]
     Active Substance: ERLOTINIB
     Dosage: 150 MILLIGRAM, QD
     Route: 048
     Dates: start: 20171219
  4. PARACETAMOL [Suspect]
     Active Substance: ACETAMINOPHEN
     Indication: NASOPHARYNGITIS
     Dosage: UNK
     Route: 065
  5. ERLOTINIB [Suspect]
     Active Substance: ERLOTINIB
     Indication: LUNG NEOPLASM MALIGNANT
     Dosage: THERAPY RE-STARTED
     Route: 048
     Dates: start: 201712

REACTIONS (15)
  - Visual impairment [Recovered/Resolved]
  - Dermatitis acneiform [Unknown]
  - Off label use [Unknown]
  - Nasopharyngitis [Unknown]
  - Gait disturbance [Not Recovered/Not Resolved]
  - Epistaxis [Not Recovered/Not Resolved]
  - Dyspnoea [Recovered/Resolved]
  - Conjunctivitis [Unknown]
  - Suffocation feeling [Recovered/Resolved]
  - Diarrhoea [Recovered/Resolved]
  - Fatigue [Not Recovered/Not Resolved]
  - Eye disorder [Recovering/Resolving]
  - Condition aggravated [Unknown]
  - Product use in unapproved indication [Unknown]
  - Hypoaesthesia [Recovered/Resolved]

NARRATIVE: CASE EVENT DATE: 201712
